FAERS Safety Report 7080747-1 (Version None)
Quarter: 2010Q4

REPORT INFORMATION
  Report Type: 
  Country: None (occurrence: None)
  Receive Date: 20101103
  Receipt Date: 20101027
  Transmission Date: 20110411
  Serious: Yes (Other)
  Sender: FDA-Public Use
  Company Number: US-SANOFI-AVENTIS-2010SA063330

PATIENT
  Age: 54 Year
  Sex: Female

DRUGS (3)
  1. LANTUS [Suspect]
     Indication: TYPE 2 DIABETES MELLITUS
     Dosage: 50-60 UNITS DAILY
     Route: 058
     Dates: start: 20040101, end: 20100101
  2. SOLOSTAR [Suspect]
     Dates: start: 20070101
  3. NOVOLOG [Concomitant]
     Dosage: SLIDING SCALE

REACTIONS (5)
  - CARPAL TUNNEL SYNDROME [None]
  - CELLULITIS [None]
  - LIMB INJURY [None]
  - NEUROPATHIC ARTHROPATHY [None]
  - STAPHYLOCOCCAL INFECTION [None]
